FAERS Safety Report 8172467-7 (Version None)
Quarter: 2012Q1

REPORT INFORMATION
  Report Type: 
  Country: None (occurrence: None)
  Receive Date: 20120227
  Receipt Date: 20120227
  Transmission Date: 20120608
  Serious: Yes (Hospitalization)
  Sender: FDA-Public Use
  Company Number: None

PATIENT
  Age: 81 Year
  Sex: Female
  Weight: 120.6 kg

DRUGS (2)
  1. ENALAPRIL MALEATE [Suspect]
     Indication: HYPERTENSION
     Dosage: 20 MG EVERY DAY PO
     Route: 048
     Dates: start: 20030610, end: 20120209
  2. ENALAPRIL MALEATE [Suspect]
     Indication: DIABETES MELLITUS
     Dosage: 20 MG EVERY DAY PO
     Route: 048
     Dates: start: 20030610, end: 20120209

REACTIONS (1)
  - ANGIOEDEMA [None]
